FAERS Safety Report 5358319-6 (Version None)
Quarter: 2007Q2

REPORT INFORMATION
  Report Type: 
  Country: None (occurrence: None)
  Receive Date: 20070614
  Receipt Date: 20070614
  Transmission Date: 20071010
  Serious: Yes (Hospitalization)
  Sender: FDA-Public Use
  Company Number: None

PATIENT
  Sex: Male
  Weight: 85.4 kg

DRUGS (8)
  1. CYTARABINE [Suspect]
     Dosage: 3760 MG
     Dates: start: 20070522
  2. DEXAMETHASONE 0.5MG TAB [Suspect]
     Dosage: 80 MG
  3. IFOSFAMIDE [Suspect]
     Dosage: 7500 MG
  4. LEUCOVORIN CALCIUM [Suspect]
     Dosage: 475 MG
  5. MESNA [Suspect]
     Dosage: 3800 MG
  6. METHOTREXATE [Suspect]
     Dosage: 2820 MG
  7. RITUXIMAB (MOAB C2B8 ANTI CD20, CHIMERIC) [Suspect]
     Dosage: 705 MG
  8. VINCRISTINE SULFATE [Suspect]
     Dosage: 2 MG

REACTIONS (17)
  - ASCITES [None]
  - ATELECTASIS [None]
  - ATRIAL FIBRILLATION [None]
  - BLOOD CULTURE POSITIVE [None]
  - CHOLELITHIASIS [None]
  - EJECTION FRACTION DECREASED [None]
  - HAEMODIALYSIS [None]
  - HEPATOMEGALY [None]
  - HYPOTENSION [None]
  - NEPHROLITHIASIS [None]
  - PLEURAL EFFUSION [None]
  - PYREXIA [None]
  - RENAL FAILURE ACUTE [None]
  - SEPSIS [None]
  - SPUTUM CULTURE POSITIVE [None]
  - STAPHYLOCOCCAL INFECTION [None]
  - TACHYCARDIA [None]
